FAERS Safety Report 7509062-6 (Version None)
Quarter: 2011Q2

REPORT INFORMATION
  Report Type: 
  Country: None (occurrence: None)
  Receive Date: 20110519
  Receipt Date: 20110510
  Transmission Date: 20111010
  Serious: Yes (Other)
  Sender: FDA-Public Use
  Company Number: 2011SP015511

PATIENT
  Sex: Female

DRUGS (4)
  1. CELLCEPT [Concomitant]
  2. DEXAMETHASONE [Concomitant]
  3. CYCLOSPORINE [Concomitant]
  4. NOXAFIL [Suspect]
     Indication: PRODUCT USED FOR UNKNOWN INDICATION
     Dosage: 200 MG, PO
     Route: 048
     Dates: start: 20110103, end: 20110405

REACTIONS (1)
  - HAEMOLYTIC ANAEMIA [None]
